FAERS Safety Report 16957831 (Version 5)
Quarter: 2020Q1

REPORT INFORMATION
  Report Type: Spontaneous
  Country: US (occurrence: US)
  Receive Date: 20191024
  Receipt Date: 20200311
  Transmission Date: 20200409
  Serious: No
  Sender: FDA-Public Use
  Company Number: US-SA-2019SA294247

PATIENT
  Age: 50 Year
  Sex: Female

DRUGS (1)
  1. AUBAGIO [Suspect]
     Active Substance: TERIFLUNOMIDE
     Indication: MULTIPLE SCLEROSIS
     Dosage: 14 MG, QD
     Route: 048
     Dates: start: 20190829

REACTIONS (9)
  - Pain [Not Recovered/Not Resolved]
  - Alopecia [Not Recovered/Not Resolved]
  - Amnesia [Unknown]
  - Mobility decreased [Not Recovered/Not Resolved]
  - Pain in extremity [Not Recovered/Not Resolved]
  - Product dose omission [Unknown]
  - Dysarthria [Unknown]
  - Balance disorder [Unknown]
  - Abdominal pain [Unknown]

NARRATIVE: CASE EVENT DATE: 2019
